FAERS Safety Report 23180587 (Version 2)
Quarter: 2024Q1

REPORT INFORMATION
  Report Type: Spontaneous
  Country: US (occurrence: US)
  Receive Date: 20231114
  Receipt Date: 20240329
  Transmission Date: 20240410
  Serious: No
  Sender: FDA-Public Use
  Company Number: US-BRISTOL-MYERS SQUIBB COMPANY-2023-163202

PATIENT
  Age: 16 Year
  Sex: Female
  Weight: 57.06 kg

DRUGS (6)
  1. KENALOG [Suspect]
     Active Substance: TRIAMCINOLONE ACETONIDE
     Indication: Skin papilloma
     Dosage: DOSE : 1;     FREQ : ONCE  (0.1MG OF A 5MG/5ML)
     Route: 023
     Dates: start: 20231109, end: 20231109
  2. KENALOG [Suspect]
     Active Substance: TRIAMCINOLONE ACETONIDE
     Route: 023
     Dates: start: 20230911
  3. CANDIDA ALBICANS [Suspect]
     Active Substance: CANDIDA ALBICANS
     Indication: Skin papilloma
     Route: 023
     Dates: start: 20231109, end: 20231207
  4. VITAMIN E [Concomitant]
     Active Substance: .ALPHA.-TOCOPHEROL
     Indication: Product used for unknown indication
  5. CYPROHEPTADINE [Concomitant]
     Active Substance: CYPROHEPTADINE
     Indication: Product used for unknown indication
  6. DEXTROMETHORPHAN [Concomitant]
     Active Substance: DEXTROMETHORPHAN
     Indication: Cough

REACTIONS (3)
  - Wrong product administered [Unknown]
  - Product colour issue [Unknown]
  - Off label use [Unknown]

NARRATIVE: CASE EVENT DATE: 20231109
